FAERS Safety Report 11927915 (Version 4)
Quarter: 2016Q1

REPORT INFORMATION
  Report Type: Spontaneous
  Country: JP (occurrence: JP)
  Receive Date: 20160119
  Receipt Date: 20160304
  Transmission Date: 20160526
  Serious: Yes (Other)
  Sender: FDA-Public Use
  Company Number: PHHY2016JP005547

PATIENT
  Age: 39 Year
  Sex: Female

DRUGS (4)
  1. NEORAL [Suspect]
     Active Substance: CYCLOSPORINE
     Indication: RENAL TRANSPLANT
     Dosage: UNK
     Route: 048
  2. IMURAN [Suspect]
     Active Substance: AZATHIOPRINE
     Indication: IMMUNOSUPPRESSANT DRUG THERAPY
  3. NEORAL [Suspect]
     Active Substance: CYCLOSPORINE
     Indication: IMMUNOSUPPRESSANT DRUG THERAPY
  4. IMURAN [Suspect]
     Active Substance: AZATHIOPRINE
     Indication: RENAL TRANSPLANT
     Dosage: UNK
     Route: 065

REACTIONS (4)
  - Renal impairment [Not Recovered/Not Resolved]
  - Maternal exposure during pregnancy [Unknown]
  - Kidney transplant rejection [Unknown]
  - Abortion spontaneous [Unknown]
